FAERS Safety Report 9894570 (Version 2)
Quarter: 2014Q1

REPORT INFORMATION
  Report Type: Spontaneous
  Country: US (occurrence: US)
  Receive Date: 20140213
  Receipt Date: 20140226
  Transmission Date: 20141002
  Serious: Yes (Death, Life-Threatening, Hospitalization, Other)
  Sender: FDA-Public Use
  Company Number: US-MERCK-1402USA005839

PATIENT
  Sex: Female
  Weight: 117.91 kg

DRUGS (3)
  1. JANUVIA [Suspect]
     Indication: TYPE 2 DIABETES MELLITUS
     Dosage: 100 MG, QD
     Route: 048
     Dates: start: 20110418, end: 20120510
  2. GLIPIZIDE [Concomitant]
     Indication: TYPE 2 DIABETES MELLITUS
  3. METFORMIN [Concomitant]
     Indication: TYPE 2 DIABETES MELLITUS

REACTIONS (7)
  - Adenocarcinoma pancreas [Fatal]
  - Bacteraemia [Fatal]
  - Fungaemia [Fatal]
  - Liver abscess [Fatal]
  - Hypertension [Unknown]
  - Atrial fibrillation [Unknown]
  - Anaemia [Unknown]
